FAERS Safety Report 18723971 (Version 5)
Quarter: 2024Q1

REPORT INFORMATION
  Report Type: Report from Study
  Country: US (occurrence: US)
  Receive Date: 20210111
  Receipt Date: 20240116
  Transmission Date: 20240410
  Serious: No
  Sender: FDA-Public Use
  Company Number: US-ACADIA PHARMACEUTICALS INC.-ACA-2020-PIM-004039

PATIENT
  Sex: Male

DRUGS (5)
  1. NUPLAZID [Suspect]
     Active Substance: PIMAVANSERIN TARTRATE
     Indication: Psychotic disorder
     Dosage: 34 MILLIGRAM, QD
     Route: 048
  2. NUPLAZID [Suspect]
     Active Substance: PIMAVANSERIN TARTRATE
     Indication: Hallucination
     Dosage: 34 MILLIGRAM, QD
     Route: 048
     Dates: start: 20201215
  3. NUPLAZID [Suspect]
     Active Substance: PIMAVANSERIN TARTRATE
     Indication: Parkinson^s disease
  4. NUPLAZID [Suspect]
     Active Substance: PIMAVANSERIN TARTRATE
     Indication: Delusion
  5. NUPLAZID [Suspect]
     Active Substance: PIMAVANSERIN TARTRATE
     Indication: Parkinson^s disease psychosis

REACTIONS (7)
  - Product dose omission issue [Unknown]
  - Abnormal behaviour [Unknown]
  - Dementia [Unknown]
  - Product dose omission issue [Unknown]
  - Product dose omission issue [Unknown]
  - Hallucination [Unknown]
  - Peripheral swelling [Unknown]
